FAERS Safety Report 5052114-3 (Version None)
Quarter: 2006Q3

REPORT INFORMATION
  Report Type: 
  Country: None (occurrence: None)
  Receive Date: 20060711
  Receipt Date: 20060619
  Transmission Date: 20061208
  Serious: Yes (Disabling, Other)
  Sender: FDA-Public Use
  Company Number: CA200602004365

PATIENT
  Age: 34 Year
  Sex: Male

DRUGS (1)
  1. STRATTERA [Suspect]
     Indication: ATTENTION DEFICIT/HYPERACTIVITY DISORDER
     Dosage: 10 MG DAILY (1/D) ORAL
     Route: 048
     Dates: start: 20051201, end: 20051201

REACTIONS (3)
  - FEELING ABNORMAL [None]
  - MARITAL PROBLEM [None]
  - SUICIDAL IDEATION [None]
